FAERS Safety Report 4358473-9 (Version None)
Quarter: 2004Q2

REPORT INFORMATION
  Report Type: 
  Country: None (occurrence: None)
  Receive Date: 20040514
  Receipt Date: 20040303
  Transmission Date: 20050107
  Serious: Yes (Life-Threatening, Hospitalization, Other)
  Sender: FDA-Public Use
  Company Number: PHFR2004GB01302

PATIENT
  Age: 36 Year
  Sex: Male
  Weight: 70 kg

DRUGS (1)
  1. GLEEVEC [Suspect]
     Route: 048
     Dates: start: 20021101

REACTIONS (10)
  - ALANINE AMINOTRANSFERASE INCREASED [None]
  - ANAEMIA [None]
  - BLOOD LACTATE DEHYDROGENASE INCREASED [None]
  - C-REACTIVE PROTEIN INCREASED [None]
  - CARDIAC MURMUR [None]
  - ECHOCARDIOGRAM ABNORMAL [None]
  - ENDOCARDITIS BACTERIAL [None]
  - HAEMATURIA [None]
  - PYREXIA [None]
  - THROMBOCYTOPENIA [None]
